FAERS Safety Report 10424699 (Version 4)
Quarter: 2018Q3

REPORT INFORMATION
  Report Type: Report from Study
  Country: US (occurrence: US)
  Receive Date: 20140902
  Receipt Date: 20180830
  Transmission Date: 20181010
  Serious: Yes (Death, Hospitalization)
  Sender: FDA-Public Use
  Company Number: US-ACTELION-A-US2014-103084

PATIENT
  Age: 71 Year
  Sex: Female

DRUGS (11)
  1. COUMADIN [Suspect]
     Active Substance: WARFARIN SODIUM
     Indication: PRODUCT USED FOR UNKNOWN INDICATION
     Route: 065
  2. AMIODARONE [Concomitant]
     Active Substance: AMIODARONE
  3. DIGOX [Concomitant]
     Active Substance: DIGOXIN
  4. OPSUMIT [Suspect]
     Active Substance: MACITENTAN
     Indication: PULMONARY ARTERIAL HYPERTENSION
     Dosage: 10 MG, UNK
     Route: 048
     Dates: start: 201402
  5. DOXYCYCLINE MONOHYDRATE [Concomitant]
     Active Substance: DOXYCYCLINE
  6. OMEPRAZOLE. [Concomitant]
     Active Substance: OMEPRAZOLE
  7. CARVEDILOL. [Concomitant]
     Active Substance: CARVEDILOL
  8. LEVOTHYROXINE SODIUM. [Concomitant]
     Active Substance: LEVOTHYROXINE SODIUM
  9. PROAIR HFA [Concomitant]
     Active Substance: ALBUTEROL SULFATE
  10. OPSUMIT [Suspect]
     Active Substance: MACITENTAN
     Dosage: 10 UNK, UNK
     Route: 048
     Dates: start: 20140513
  11. ASPIRIN. [Concomitant]
     Active Substance: ASPIRIN

REACTIONS (5)
  - Death [Fatal]
  - Spontaneous haematoma [Recovering/Resolving]
  - Vein collapse [Recovering/Resolving]
  - Walking disability [Recovering/Resolving]
  - Oedema peripheral [Recovering/Resolving]
